FAERS Safety Report 14039794 (Version 2)
Quarter: 2018Q3

REPORT INFORMATION
  Report Type: Report from Study
  Country: IT (occurrence: IT)
  Receive Date: 20171004
  Receipt Date: 20180910
  Transmission Date: 20181010
  Serious: Yes (Other)
  Sender: FDA-Public Use
  Company Number: PHHY2017IT098496

PATIENT
  Age: 51 Year
  Sex: Female

DRUGS (2)
  1. COSENTYX [Suspect]
     Active Substance: SECUKINUMAB
     Indication: PRODUCT USED FOR UNKNOWN INDICATION
     Dosage: 300 MG, QMO (EVERY 28 DAYS)
     Route: 065
     Dates: start: 20170613
  2. COSENTYX [Suspect]
     Active Substance: SECUKINUMAB
     Dosage: 300 MG, QMO (EVERY 28 DAYS)
     Route: 065

REACTIONS (10)
  - Pain [Unknown]
  - Infection [Unknown]
  - Burning sensation [Unknown]
  - Cardiac fibrillation [Unknown]
  - Pruritus [Unknown]
  - Skin exfoliation [Unknown]
  - Psoriasis [Unknown]
  - Blister [Unknown]
  - Drug effect incomplete [Unknown]
  - Discomfort [Unknown]

NARRATIVE: CASE EVENT DATE: 201706
